FAERS Safety Report 9475947 (Version 1)
Quarter: 2013Q3

REPORT INFORMATION
  Report Type: Spontaneous
  Country: US (occurrence: US)
  Receive Date: 20130826
  Receipt Date: 20130826
  Transmission Date: 20140515
  Serious: No
  Sender: FDA-Public Use
  Company Number: US-BAYER-2013-102303

PATIENT
  Age: 80 Year
  Sex: Female
  Weight: 61.22 kg

DRUGS (1)
  1. ALEVE TABLET [Suspect]
     Indication: MYALGIA
     Dosage: 1 DF, PRN
     Route: 048
     Dates: start: 2008

REACTIONS (1)
  - Abdominal discomfort [Recovered/Resolved]
